FAERS Safety Report 13905855 (Version 2)
Quarter: 2017Q3

REPORT INFORMATION
  Report Type: Spontaneous
  Country: US (occurrence: US)
  Receive Date: 20170825
  Receipt Date: 20170927
  Transmission Date: 20171127
  Serious: No
  Sender: FDA-Public Use
  Company Number: US-GLAXOSMITHKLINE-US2017131164

PATIENT
  Age: 50 Year
  Sex: Female
  Weight: 85.26 kg

DRUGS (2)
  1. PREDNISONE. [Concomitant]
     Active Substance: PREDNISONE
  2. NUCALA [Suspect]
     Active Substance: MEPOLIZUMAB
     Indication: ASTHMA
     Dosage: 100 MG, CYC
     Route: 042
     Dates: start: 201707, end: 201708

REACTIONS (8)
  - Adverse drug reaction [Recovered/Resolved]
  - Pruritus generalised [Unknown]
  - Rash [Unknown]
  - Hypersensitivity [Unknown]
  - Urticaria [Unknown]
  - Flushing [Recovered/Resolved]
  - Ear pruritus [Recovered/Resolved]
  - Erythema [Recovered/Resolved]

NARRATIVE: CASE EVENT DATE: 201708
